FAERS Safety Report 25150044 (Version 5)
Quarter: 2025Q4

REPORT INFORMATION
  Report Type: Report from Study
  Country: US (occurrence: US)
  Receive Date: 20250402
  Receipt Date: 20251009
  Transmission Date: 20260117
  Serious: Yes (Other)
  Sender: TAKEDA
  Company Number: US-TAKEDA-2024TUS117962

PATIENT
  Age: 44 Year
  Sex: Male

DRUGS (7)
  1. VONICOG ALFA [Suspect]
     Active Substance: VONICOG ALFA
     Indication: Premedication
     Dosage: 3000 INTERNATIONAL UNIT, 3/WEEK
  2. VONICOG ALFA [Suspect]
     Active Substance: VONICOG ALFA
     Dosage: 3000 INTERNATIONAL UNIT
  3. VONICOG ALFA [Suspect]
     Active Substance: VONICOG ALFA
     Dosage: 1500 INTERNATIONAL UNIT, 3/WEEK
  4. VONICOG ALFA [Suspect]
     Active Substance: VONICOG ALFA
     Dosage: 1500 INTERNATIONAL UNIT, 3/WEEK
  5. VONICOG ALFA [Suspect]
     Active Substance: VONICOG ALFA
     Dosage: 3200 INTERNATIONAL UNIT
  6. VONICOG ALFA [Suspect]
     Active Substance: VONICOG ALFA
     Dosage: 3200 INTERNATIONAL UNIT, 2/WEEK
  7. VONICOG ALFA [Suspect]
     Active Substance: VONICOG ALFA
     Dosage: UNK

REACTIONS (12)
  - Haemorrhage [Recovered/Resolved]
  - Haemarthrosis [Unknown]
  - Swelling [Unknown]
  - Extra dose administered [Unknown]
  - Device issue [Unknown]
  - Fall [Unknown]
  - Joint swelling [Unknown]
  - Product use issue [Unknown]
  - Poor venous access [Unknown]
  - Arthralgia [Unknown]
  - Device infusion issue [Unknown]
  - Device defective [Unknown]

NARRATIVE: CASE EVENT DATE: 20241120
